FAERS Safety Report 25112220 (Version 1)
Quarter: 2025Q1

REPORT INFORMATION
  Report Type: Spontaneous
  Country: US (occurrence: US)
  Receive Date: 20250324
  Receipt Date: 20250324
  Transmission Date: 20250409
  Serious: No
  Sender: UCB
  Company Number: US-UCBSA-2024053934

PATIENT
  Age: 23 Year
  Sex: Female

DRUGS (7)
  1. BRIVARACETAM [Suspect]
     Active Substance: BRIVARACETAM
     Indication: Juvenile myoclonic epilepsy
     Dosage: 150 MILLIGRAM, ONCE DAILY (QD)
  2. BRIVARACETAM [Suspect]
     Active Substance: BRIVARACETAM
     Indication: Off label use
  3. EPIDIOLEX [Concomitant]
     Active Substance: CANNABIDIOL
     Indication: Juvenile myoclonic epilepsy
     Dosage: 1960 MILLIGRAM, ONCE DAILY (QD), (21MG/KG/D)
  4. EPIDIOLEX [Concomitant]
     Active Substance: CANNABIDIOL
     Dosage: 2150 MILLIGRAM, ONCE DAILY (QD), (23MG/KG/D)
  5. EPIDIOLEX [Concomitant]
     Active Substance: CANNABIDIOL
     Dosage: 2480 MILLIGRAM, ONCE DAILY (QD), (24.8MG/KG/D)
  6. EPIDIOLEX [Concomitant]
     Active Substance: CANNABIDIOL
     Dosage: 23.7 MILLIGRAM/KILOGRAM, ONCE DAILY (QD)
  7. FOLIC ACID [Concomitant]
     Active Substance: FOLIC ACID
     Indication: Juvenile myoclonic epilepsy

REACTIONS (3)
  - Maternal exposure during pregnancy [Unknown]
  - Maternal exposure before pregnancy [Unknown]
  - Off label use [Unknown]
